FAERS Safety Report 8356826 (Version 2)
Quarter: 2013Q2

REPORT INFORMATION
  Report Type: Spontaneous
  Country: CN (occurrence: CN)
  Receive Date: 20120126
  Receipt Date: 20130523
  Transmission Date: 20140414
  Serious: Yes (Other)
  Sender: FDA-Public Use
  Company Number: CN-BAUSCH-2011BL009059

PATIENT
  Age: 18 Year
  Sex: Male

DRUGS (4)
  1. LOTEMAX (LOTEPREDNOL ETABONATE OPHTHALMIC SUSPENSION 0.5%) [Suspect]
     Indication: POSTOPERATIVE CARE
     Route: 047
     Dates: start: 20110902, end: 20110909
  2. LOTEMAX (LOTEPREDNOL ETABONATE OPHTHALMIC SUSPENSION 0.5%) [Suspect]
     Route: 047
     Dates: start: 20110910, end: 20110916
  3. LOTEMAX (LOTEPREDNOL ETABONATE OPHTHALMIC SUSPENSION 0.5%) [Suspect]
     Route: 047
     Dates: start: 20110917, end: 20110923
  4. LOTEMAX (LOTEPREDNOL ETABONATE OPHTHALMIC SUSPENSION 0.5%) [Suspect]
     Route: 047
     Dates: start: 20110924, end: 20110930

REACTIONS (1)
  - Open angle glaucoma [Not Recovered/Not Resolved]
